FAERS Safety Report 6852184-3 (Version None)
Quarter: 2010Q3

REPORT INFORMATION
  Report Type: 
  Country: None (occurrence: None)
  Receive Date: 20100717
  Receipt Date: 20080520
  Transmission Date: 20110219
  Serious: No
  Sender: FDA-Public Use
  Company Number: US-PFIZER INC-2007094776

PATIENT
  Sex: Female
  Weight: 68.04 kg

DRUGS (5)
  1. CHANTIX [Suspect]
     Indication: SMOKING CESSATION THERAPY
     Route: 048
     Dates: start: 20071024, end: 20071106
  2. SYNTHROID [Concomitant]
     Route: 048
  3. FEXOFENADINE HCL [Concomitant]
     Route: 048
  4. ATIVAN [Concomitant]
  5. EVISTA [Concomitant]

REACTIONS (7)
  - ABDOMINAL DISCOMFORT [None]
  - ABNORMAL DREAMS [None]
  - CONSTIPATION [None]
  - DIZZINESS [None]
  - FEELING ABNORMAL [None]
  - INSOMNIA [None]
  - NERVOUSNESS [None]
